FAERS Safety Report 19262947 (Version 1)
Quarter: 2021Q2

REPORT INFORMATION
  Report Type: Spontaneous
  Country: IN (occurrence: IN)
  Receive Date: 20210517
  Receipt Date: 20210517
  Transmission Date: 20210717
  Serious: Yes (Hospitalization, Other)
  Sender: FDA-Public Use
  Company Number: IN-EPICPHARMA-IN-2021EPCLIT00522

PATIENT
  Age: 46 Year
  Sex: Female

DRUGS (11)
  1. OMEPRAZOLE. [Interacting]
     Active Substance: OMEPRAZOLE
     Indication: SUPPORTIVE CARE
     Route: 065
  2. SALBUTAMOL [Interacting]
     Active Substance: ALBUTEROL
     Indication: SUPPORTIVE CARE
     Route: 065
  3. AZITHROMYCIN ANHYDROUS. [Interacting]
     Active Substance: AZITHROMYCIN ANHYDROUS
     Indication: SUPPORTIVE CARE
     Route: 065
  4. ONDANSETRON [Interacting]
     Active Substance: ONDANSETRON
     Indication: VOMITING
     Route: 065
  5. DOMPERIDONE [Interacting]
     Active Substance: DOMPERIDONE
     Indication: SUPPORTIVE CARE
     Route: 065
  6. PHENYTOIN. [Suspect]
     Active Substance: PHENYTOIN
     Route: 048
  7. METFORMIN [Interacting]
     Active Substance: METFORMIN HYDROCHLORIDE
     Indication: SUPPORTIVE CARE
     Route: 065
  8. CETIRIZINE [Interacting]
     Active Substance: CETIRIZINE HYDROCHLORIDE
     Indication: SUPPORTIVE CARE
     Route: 065
  9. RANITIDINE. [Suspect]
     Active Substance: RANITIDINE
     Indication: PRODUCT USED FOR UNKNOWN INDICATION
     Route: 042
  10. RINGERS LACTATE [Concomitant]
     Active Substance: CALCIUM CHLORIDE\POTASSIUM CHLORIDE\SODIUM LACTATE
     Indication: PRODUCT USED FOR UNKNOWN INDICATION
     Route: 042
  11. PHENYTOIN. [Suspect]
     Active Substance: PHENYTOIN
     Indication: PRODUCT USED FOR UNKNOWN INDICATION
     Route: 065

REACTIONS (4)
  - Drug interaction [Unknown]
  - Toxicity to various agents [Unknown]
  - Vomiting [Unknown]
  - Seizure [Recovered/Resolved]
